FAERS Safety Report 9787307 (Version 2)
Quarter: 2014Q1

REPORT INFORMATION
  Report Type: Report from Study
  Country: US (occurrence: US)
  Receive Date: 20131230
  Receipt Date: 20140204
  Transmission Date: 20141002
  Serious: Yes (Other)
  Sender: FDA-Public Use
  Company Number: US-ROCHE-1322376

PATIENT
  Sex: Female

DRUGS (11)
  1. CLONAZEPAM [Suspect]
     Indication: PRODUCT USED FOR UNKNOWN INDICATION
     Route: 065
  2. KEPPRA [Concomitant]
  3. PROTONIX (UNITED STATES) [Concomitant]
  4. SINGULAIR [Concomitant]
     Route: 065
  5. ZYRTEC [Concomitant]
     Route: 065
  6. FLONASE [Concomitant]
     Dosage: PER NOSTRIL
     Route: 045
  7. PERFOROMIST [Concomitant]
     Dosage: NEBULIZER
     Route: 065
  8. SEROQUEL [Concomitant]
  9. CLONIDINE [Concomitant]
  10. ABILIFY [Concomitant]
  11. PULMICORT [Concomitant]
     Route: 065

REACTIONS (15)
  - Developmental delay [Unknown]
  - Asthma [Unknown]
  - Cough [Unknown]
  - Upper-airway cough syndrome [Unknown]
  - Vomiting [Unknown]
  - Nasal congestion [Unknown]
  - Rhinorrhoea [Unknown]
  - Retching [Unknown]
  - Sinusitis [Unknown]
  - Otitis media [Unknown]
  - Selective polysaccharide antibody deficiency [Unknown]
  - Nasal turbinate abnormality [Unknown]
  - Wheezing [Unknown]
  - Atopy [Unknown]
  - Obstructive airways disorder [Unknown]
